FAERS Safety Report 17677021 (Version 1)
Quarter: 2020Q2

REPORT INFORMATION
  Report Type: Report from Study
  Country: DE (occurrence: DE)
  Receive Date: 20200416
  Receipt Date: 20200416
  Transmission Date: 20200714
  Serious: Yes (Other)
  Sender: FDA-Public Use
  Company Number: DE-BAUSCH-BL-2020-010790

PATIENT
  Age: 71 Year
  Sex: Male
  Weight: 76 kg

DRUGS (7)
  1. PANTOPRAZOL (PANTOPRAZOLE) [Concomitant]
     Active Substance: PANTOPRAZOLE
     Indication: PROPHYLAXIS
     Dates: start: 20191203
  2. KYPROLIS [Suspect]
     Active Substance: CARFILZOMIB
     Indication: PLASMA CELL MYELOMA
     Route: 042
     Dates: start: 20191203, end: 20191204
  3. ACICLO [Concomitant]
     Indication: PROPHYLAXIS
     Dates: start: 20191203
  4. ASA [Concomitant]
     Active Substance: ASPIRIN
     Indication: PROPHYLAXIS
     Dates: start: 20191203
  5. XGEVA [Concomitant]
     Active Substance: DENOSUMAB
     Indication: PROPHYLAXIS
     Dates: start: 20191223
  6. KYPROLIS [Suspect]
     Active Substance: CARFILZOMIB
     Route: 042
     Dates: start: 20191210, end: 20200219
  7. DEXAMETHASONE. [Suspect]
     Active Substance: DEXAMETHASONE
     Indication: PLASMA CELL MYELOMA
     Route: 065
     Dates: start: 20191203, end: 20200310

REACTIONS (1)
  - Haematotoxicity [Recovered/Resolved]

NARRATIVE: CASE EVENT DATE: 20200127
